FAERS Safety Report 4804413-5 (Version None)
Quarter: 2005Q4

REPORT INFORMATION
  Report Type: 
  Country: None (occurrence: None)
  Receive Date: 20051020
  Receipt Date: 20051018
  Transmission Date: 20060501
  Serious: Yes (Hospitalization)
  Sender: FDA-Public Use
  Company Number: US-GLAXOSMITHKLINE-A0578646A

PATIENT
  Age: 51 Year
  Sex: Female

DRUGS (10)
  1. PARNATE [Suspect]
     Indication: MAJOR DEPRESSION
     Route: 048
     Dates: start: 20041101
  2. LAMICTAL [Concomitant]
  3. AMBIEN [Concomitant]
  4. RISPERDAL [Concomitant]
  5. ACIPHEX [Concomitant]
  6. GLUCOPHAGE [Concomitant]
  7. EVISTA [Concomitant]
  8. CELEBREX [Concomitant]
  9. PREMARIN [Concomitant]
  10. FLONASE [Concomitant]

REACTIONS (8)
  - BLOOD PRESSURE DECREASED [None]
  - BLOOD PRESSURE FLUCTUATION [None]
  - BLOOD PRESSURE INCREASED [None]
  - DEPRESSION [None]
  - ELECTROCONVULSIVE THERAPY [None]
  - HYPOMANIA [None]
  - INSOMNIA [None]
  - SLEEP WALKING [None]
